FAERS Safety Report 8475981-X (Version None)
Quarter: 2012Q2

REPORT INFORMATION
  Report Type: 
  Country: None (occurrence: None)
  Receive Date: 20120628
  Receipt Date: 20120622
  Transmission Date: 20120825
  Serious: Yes (Hospitalization)
  Sender: FDA-Public Use
  Company Number: FR-MERCK-1206FRA00133

PATIENT
  Age: 65 Year
  Sex: Male

DRUGS (6)
  1. JANUVIA [Suspect]
     Route: 048
     Dates: start: 20111001, end: 20120416
  2. METFORMIN [Concomitant]
     Route: 048
  3. ESOMEPRAZOLE MAGNESIUM [Concomitant]
     Route: 065
  4. ALBUTEROL [Concomitant]
     Route: 065
  5. ALGINIC ACID AND ALUMINUM HYDROXIDE AND MAGNESIUM TRISILICATE AND SODI [Concomitant]
     Route: 065
  6. HYDROCHLOROTHIAZIDE AND OLMESARTAN MEDOXOMIL [Concomitant]
     Route: 065

REACTIONS (3)
  - EOSINOPHILIA [None]
  - PRURITUS [None]
  - PEMPHIGOID [None]
